FAERS Safety Report 6488215-2 (Version None)
Quarter: 2009Q4

REPORT INFORMATION
  Report Type: 
  Country: None (occurrence: None)
  Receive Date: 20091210
  Receipt Date: 20091208
  Transmission Date: 20100525
  Serious: Yes (Death, Other)
  Sender: FDA-Public Use
  Company Number: B0600913A

PATIENT
  Sex: Female
  Weight: 88.6 kg

DRUGS (6)
  1. ROSIGLITAZONE [Suspect]
     Route: 048
     Dates: start: 20020417, end: 20081207
  2. METFORMIN HCL [Suspect]
     Dosage: 2550MG PER DAY
     Route: 048
     Dates: start: 20020125, end: 20091022
  3. GLIBENESE [Suspect]
     Dosage: 5MG PER DAY
     Route: 048
     Dates: start: 20081208, end: 20091022
  4. PLENDIL [Concomitant]
     Indication: HYPERTENSION
     Dosage: 5MG PER DAY
     Route: 048
     Dates: start: 20011123, end: 20091022
  5. LOSARTAN [Concomitant]
     Indication: HYPERTENSION
     Dosage: 50MG PER DAY
     Route: 048
     Dates: start: 20080421, end: 20091022
  6. HYPOTHIAZIDE [Concomitant]
     Indication: HYPERTENSION
     Dosage: 25MG PER DAY
     Route: 048
     Dates: start: 20021009, end: 20091022

REACTIONS (3)
  - BRAIN OEDEMA [None]
  - METASTASES TO CENTRAL NERVOUS SYSTEM [None]
  - UTERINE LEIOMYOSARCOMA [None]
